FAERS Safety Report 20193484 (Version 1)
Quarter: 2021Q4

REPORT INFORMATION
  Report Type: Spontaneous
  Country: US (occurrence: None)
  Receive Date: 20211215
  Receipt Date: 20211215
  Transmission Date: 20220303
  Serious: No
  Sender: FDA-Public Use
  Company Number: None

PATIENT
  Sex: Female

DRUGS (2)
  1. TEMOZOLOMIDE [Suspect]
     Active Substance: TEMOZOLOMIDE
     Indication: Thyroid cancer
     Dosage: FREQUENCY : DAILY;?
     Route: 048
     Dates: start: 202007, end: 202112
  2. TEMOZOLOMIDE [Suspect]
     Active Substance: TEMOZOLOMIDE
     Indication: Thyroid cancer
     Dosage: FREQUENCY : DAILY;?
     Route: 048
     Dates: start: 202007, end: 202112

REACTIONS (1)
  - Cardiac failure congestive [None]
